FAERS Safety Report 25069426 (Version 1)
Quarter: 2025Q1

REPORT INFORMATION
  Report Type: Spontaneous
  Country: RU (occurrence: RU)
  Receive Date: 20250312
  Receipt Date: 20250312
  Transmission Date: 20250409
  Serious: Yes (Other)
  Sender: BRAINTREE
  Company Number: RU-BRAINTREE LABORATORIES, INC.-2025BTE00115

PATIENT
  Sex: Female

DRUGS (1)
  1. MAGNESIUM SULFATE\POTASSIUM SULFATE\SODIUM SULFATE [Suspect]
     Active Substance: MAGNESIUM SULFATE\POTASSIUM SULFATE\SODIUM SULFATE
     Indication: Product used for unknown indication
     Route: 065

REACTIONS (5)
  - Depressed level of consciousness [Unknown]
  - Blood pressure fluctuation [Unknown]
  - Renal pain [Unknown]
  - Chills [Unknown]
  - Dizziness [Unknown]

NARRATIVE: CASE EVENT DATE: 20241128
